FAERS Safety Report 10445941 (Version 2)
Quarter: 2014Q3

REPORT INFORMATION
  Report Type: Spontaneous
  Country: FR (occurrence: FR)
  Receive Date: 20140910
  Receipt Date: 20140910
  Transmission Date: 20150326
  Serious: Yes (Other)
  Sender: FDA-Public Use
  Company Number: FR-ASTRAZENECA-2014SE10425

PATIENT
  Age: 405 Month
  Sex: Female

DRUGS (5)
  1. XEROQUEL [Suspect]
     Active Substance: QUETIAPINE FUMARATE
     Indication: BIPOLAR DISORDER
     Route: 048
     Dates: start: 201306
  2. TERCIAN (NON AZ DRUG) [Suspect]
     Active Substance: CYAMEMAZINE
     Indication: DEPRESSION
     Route: 065
     Dates: start: 2012
  3. XEROQUEL [Suspect]
     Active Substance: QUETIAPINE FUMARATE
     Indication: DEPRESSION
     Route: 048
     Dates: start: 201306
  4. BROMAZEPAM [Suspect]
     Active Substance: BROMAZEPAM
     Indication: DEPRESSION
     Route: 065
     Dates: start: 201306
  5. FLUOXETINE [Suspect]
     Active Substance: FLUOXETINE\FLUOXETINE HYDROCHLORIDE
     Indication: DEPRESSION
     Route: 065
     Dates: start: 201306

REACTIONS (6)
  - Genital haemorrhage [Recovered/Resolved]
  - Genital haemorrhage [None]
  - Exposure during pregnancy [None]
  - Exposure during pregnancy [Recovered/Resolved]
  - Retroplacental haematoma [None]
  - Retroplacental haematoma [Recovered/Resolved]

NARRATIVE: CASE EVENT DATE: 201309
